FAERS Safety Report 9535261 (Version 2)
Quarter: 2013Q3

REPORT INFORMATION
  Report Type: Spontaneous
  Country: US (occurrence: US)
  Receive Date: 20130918
  Receipt Date: 20130918
  Transmission Date: 20140515
  Serious: No
  Sender: FDA-Public Use
  Company Number: US-PURDUE-USA-2012-0089351

PATIENT
  Age: 43 Year
  Sex: Female
  Weight: 70.3 kg

DRUGS (4)
  1. INTERMEZZO [Suspect]
     Indication: TERMINAL INSOMNIA
     Dosage: 1.75 MG, DAILY
     Route: 060
     Dates: start: 201204
  2. BIRTH CONTROL [Concomitant]
     Indication: CONTRACEPTION
     Dosage: UNKNOWN
  3. ZOLOFT [Concomitant]
     Indication: PRODUCT USED FOR UNKNOWN INDICATION
     Dosage: UNKNOWN
  4. VITAMINS /90003601/ [Concomitant]
     Indication: PRODUCT USED FOR UNKNOWN INDICATION
     Dosage: ONE A DAY

REACTIONS (3)
  - Swollen tongue [Unknown]
  - Glossodynia [Recovered/Resolved]
  - Product outer packaging issue [Unknown]
